FAERS Safety Report 24742273 (Version 1)
Quarter: 2024Q4

REPORT INFORMATION
  Report Type: Spontaneous
  Country: US (occurrence: US)
  Receive Date: 20241217
  Receipt Date: 20241217
  Transmission Date: 20250115
  Serious: No
  Sender: ELI LILLY AND COMPANY
  Company Number: US-ELI_LILLY_AND_COMPANY-US202412011642

PATIENT
  Age: 15 Year
  Sex: Female
  Weight: 107 kg

DRUGS (13)
  1. CIALIS [Suspect]
     Active Substance: TADALAFIL
     Indication: Pulmonary arterial hypertension
     Dosage: 40 MG, DAILY
     Route: 048
     Dates: start: 20240308
  2. REMODULIN [Suspect]
     Active Substance: TREPROSTINIL
     Indication: Pulmonary arterial hypertension
     Dosage: 0.060UG/KG (SELF- FILL CASESETTE W/ 2.9ML RATE OF 33MCH/HR), CONTINUING
     Route: 058
     Dates: start: 20230313, end: 20240907
  3. UPTRAVI [Suspect]
     Active Substance: SELEXIPAG
     Indication: Pulmonary arterial hypertension
     Dosage: 1600 UG, BID
     Route: 065
     Dates: start: 20240910
  4. SOTATERCEPT [Suspect]
     Active Substance: SOTATERCEPT
     Indication: Pulmonary arterial hypertension
     Dosage: 15 MG, 3/W, THEN 35 EVERY THREE WEEKS
     Dates: start: 20240816, end: 20240831
  5. SOTATERCEPT [Suspect]
     Active Substance: SOTATERCEPT
     Dosage: 0.7 MG/KG, 3/W
     Route: 058
     Dates: start: 20240907
  6. SOTATERCEPT [Suspect]
     Active Substance: SOTATERCEPT
     Dosage: 0.3 MG/KG, 3/W, LAST DOSE IS ON 18OCT2024
     Route: 058
  7. LETAIRIS [Concomitant]
     Active Substance: AMBRISENTAN
     Indication: Pulmonary arterial hypertension
     Dosage: NUNK UNK, UNKNOWN
     Route: 048
     Dates: start: 20240308
  8. TYLENOL [Concomitant]
     Active Substance: ACETAMINOPHEN
     Indication: Product used for unknown indication
     Dosage: 1000 MG, EVERY 6 HRS
     Route: 065
  9. VITAMIN D3 [Concomitant]
     Active Substance: CHOLECALCIFEROL
     Indication: Product used for unknown indication
     Dosage: 1000 INTERNATIONAL UNIT, DAILY
     Route: 048
     Dates: start: 20230316
  10. FERROUS SULFATE [Concomitant]
     Active Substance: FERROUS SULFATE
     Indication: Product used for unknown indication
     Dosage: 325 MG, DAILY
     Route: 048
     Dates: end: 20241203
  11. VITAMINS NOS [Concomitant]
     Active Substance: VITAMINS
     Indication: Product used for unknown indication
     Dosage: 1 DOSAGE FORM, DAILY
     Route: 048
     Dates: start: 20230316
  12. AYGESTIN [Concomitant]
     Active Substance: NORETHINDRONE ACETATE
     Indication: Product used for unknown indication
     Dosage: 5 MG, DAILY
     Route: 065
  13. POLYETHYLENE GLYCOL ELECTROLYTE [Concomitant]
     Indication: Constipation
     Dosage: 17 G, DAILY
     Route: 048
     Dates: start: 20230302

REACTIONS (3)
  - Haemoglobin increased [Not Recovered/Not Resolved]
  - Chest pain [Recovered/Resolved]
  - Fatigue [Recovered/Resolved]

NARRATIVE: CASE EVENT DATE: 20241101
